FAERS Safety Report 13183365 (Version 1)
Quarter: 2017Q1

REPORT INFORMATION
  Report Type: Spontaneous
  Country: US (occurrence: US)
  Receive Date: 20170203
  Receipt Date: 20170203
  Transmission Date: 20170428
  Serious: Yes (Hospitalization)
  Sender: FDA-Public Use
  Company Number: None

PATIENT
  Age: 41 Year
  Sex: Male
  Weight: 115.21 kg

DRUGS (7)
  1. SAPHRIS [Suspect]
     Active Substance: ASENAPINE MALEATE
     Indication: AFFECTIVE DISORDER
     Route: 060
     Dates: start: 20160818, end: 20160824
  2. SAPHRIS [Suspect]
     Active Substance: ASENAPINE MALEATE
     Indication: HALLUCINATION, AUDITORY
     Route: 060
     Dates: start: 20160818, end: 20160824
  3. LITHIUM. [Concomitant]
     Active Substance: LITHIUM
  4. INNOPRAN XL [Suspect]
     Active Substance: PROPRANOLOL HYDROCHLORIDE
     Indication: TREMOR
     Route: 048
     Dates: start: 20160804, end: 20160825
  5. KLONOPIN [Concomitant]
     Active Substance: CLONAZEPAM
  6. PAROXETINE. [Concomitant]
     Active Substance: PAROXETINE
  7. PRAZOSIN [Concomitant]
     Active Substance: PRAZOSIN

REACTIONS (6)
  - Respiratory failure [None]
  - Lactic acidosis [None]
  - Pneumonia aspiration [None]
  - Leukocytosis [None]
  - Bradycardia [None]
  - Wheezing [None]

NARRATIVE: CASE EVENT DATE: 20160825
